FAERS Safety Report 12612770 (Version 1)
Quarter: 2016Q3

REPORT INFORMATION
  Report Type: Spontaneous
  Country: US (occurrence: US)
  Receive Date: 20160801
  Receipt Date: 20160801
  Transmission Date: 20161109
  Serious: No
  Sender: FDA-Public Use
  Company Number: US-009507513-1607USA013024

PATIENT

DRUGS (2)
  1. ZEPATIER [Suspect]
     Active Substance: ELBASVIR\GRAZOPREVIR
     Indication: HEPATITIS C
     Dosage: 100/50 MG, ONCE DAILY
     Route: 048
  2. REBETOL [Concomitant]
     Active Substance: RIBAVIRIN

REACTIONS (1)
  - Hepatitis C RNA increased [Not Recovered/Not Resolved]
